FAERS Safety Report 11957565 (Version 1)
Quarter: 2016Q1

REPORT INFORMATION
  Report Type: Spontaneous
  Country: KR (occurrence: KR)
  Receive Date: 20160126
  Receipt Date: 20160126
  Transmission Date: 20160526
  Serious: Yes (Other)
  Sender: FDA-Public Use
  Company Number: KR-EGALET US INC-KR-2016EGA000007

PATIENT

DRUGS (6)
  1. DICLOFENAC [Concomitant]
     Active Substance: DICLOFENAC
     Indication: PAIN MANAGEMENT
     Dosage: UNK DF, UNK
  2. KETAMINE [Concomitant]
     Active Substance: KETAMINE
     Indication: PAIN MANAGEMENT
     Dosage: UNK DF, UNK
  3. GABAPENTIN. [Concomitant]
     Active Substance: GABAPENTIN
     Indication: PAIN MANAGEMENT
     Dosage: UNK DF, UNK
  4. FENTANYL. [Suspect]
     Active Substance: FENTANYL
     Indication: PAIN MANAGEMENT
     Dosage: UNK DF, UNK
     Route: 042
  5. OXYCODONE HYDROCHLORIDE. [Suspect]
     Active Substance: OXYCODONE HYDROCHLORIDE
     Indication: PAIN MANAGEMENT
     Dosage: UNK DF, UNK
     Route: 042
  6. DEXAMETHASONE. [Concomitant]
     Active Substance: DEXAMETHASONE
     Indication: PAIN MANAGEMENT
     Dosage: UNK DF, UNK

REACTIONS (4)
  - Delirium [Recovering/Resolving]
  - Drug ineffective [Recovering/Resolving]
  - Agitation [Recovering/Resolving]
  - Disorientation [Recovering/Resolving]
